FAERS Safety Report 7247578-0 (Version None)
Quarter: 2011Q1

REPORT INFORMATION
  Report Type: 
  Country: None (occurrence: None)
  Receive Date: 20110127
  Receipt Date: 20110118
  Transmission Date: 20110831
  Serious: Yes (Hospitalization)
  Sender: FDA-Public Use
  Company Number: US-ROCHE-754929

PATIENT
  Sex: Male

DRUGS (5)
  1. AVASTIN [Suspect]
     Dosage: ROUTE, FOSE FORM ANDD FREQUENCY NOT PROVIDED.
     Route: 065
     Dates: end: 20101109
  2. TARCEVA [Suspect]
     Dosage: ROUTE, DOSE, FORM AND FREQUENCY NOT PROVIDED.
     Route: 048
     Dates: start: 20100101
  3. TAXOL [Suspect]
     Route: 065
  4. CARBOPLATIN [Suspect]
     Route: 065
  5. ZOMETA [Concomitant]

REACTIONS (14)
  - HYPOTENSION [None]
  - DEPRESSION [None]
  - COMPRESSION FRACTURE [None]
  - DYSPHAGIA [None]
  - ASTHENIA [None]
  - PNEUMONIA ASPIRATION [None]
  - FAILURE TO THRIVE [None]
  - MENTAL STATUS CHANGES [None]
  - VOCAL CORD PARALYSIS [None]
  - DISEASE PROGRESSION [None]
  - DIZZINESS [None]
  - DECREASED APPETITE [None]
  - DEHYDRATION [None]
  - CEREBROVASCULAR ACCIDENT [None]
